FAERS Safety Report 13042504 (Version 2)
Quarter: 2017Q1

REPORT INFORMATION
  Report Type: Report from Study
  Country: US (occurrence: US)
  Receive Date: 20161219
  Receipt Date: 20170104
  Transmission Date: 20170428
  Serious: Yes (Other)
  Sender: FDA-Public Use
  Company Number: US-009507513-1612USA006440

PATIENT

DRUGS (1)
  1. TEMODAR [Suspect]
     Active Substance: TEMOZOLOMIDE
     Indication: MALIGNANT GLIOMA
     Dosage: 25 OR 50  MG/M2/DAY CONTINUOUSLY IN 42-DAY CYCLES

REACTIONS (2)
  - Neutropenia [Unknown]
  - Thrombocytopenia [Unknown]
